FAERS Safety Report 6455265-1 (Version None)
Quarter: 2009Q4

REPORT INFORMATION
  Report Type: 
  Country: None (occurrence: None)
  Receive Date: 20091124
  Receipt Date: 20091112
  Transmission Date: 20100525
  Serious: No
  Sender: FDA-Public Use
  Company Number: US-B.I. PHARMACEUTICALS,INC./RIDGEFIELD-2009-BP-13218BP

PATIENT
  Age: 68 Year
  Sex: Male

DRUGS (3)
  1. FLOMAX [Suspect]
     Indication: BENIGN PROSTATIC HYPERPLASIA
     Dosage: 0.4 MG
     Route: 048
     Dates: start: 20091108
  2. TOPROL-XL [Concomitant]
     Indication: HYPERTENSION
     Dosage: 50 MG
  3. NORVASC [Concomitant]
     Indication: HYPERTENSION
     Dosage: 5 MG

REACTIONS (4)
  - BLOOD PRESSURE ABNORMAL [None]
  - DIZZINESS [None]
  - NOCTURIA [None]
  - RETROGRADE EJACULATION [None]
